FAERS Safety Report 7076463-2 (Version None)
Quarter: 2010Q4

REPORT INFORMATION
  Report Type: 
  Country: None (occurrence: None)
  Receive Date: 20101029
  Receipt Date: 20101029
  Transmission Date: 20110411
  Serious: Yes (Hospitalization)
  Sender: FDA-Public Use
  Company Number: None

PATIENT
  Age: 50 Year
  Sex: Male
  Weight: 91.6266 kg

DRUGS (2)
  1. SIMVASTATIN [Suspect]
     Indication: HYPERLIPIDAEMIA
     Dosage: 40 MG PO 8:30 PM SEVERAL MONTS
  2. SEROQUEL [Suspect]
     Indication: SCHIZOPHRENIA
     Dosage: 1200 MG PO 8:30PM SEVERAL MONTHS

REACTIONS (2)
  - FALL [None]
  - PAIN [None]
